FAERS Safety Report 21712223 (Version 1)
Quarter: 2022Q4

REPORT INFORMATION
  Report Type: Report from Study
  Country: US (occurrence: US)
  Receive Date: 20221212
  Receipt Date: 20221212
  Transmission Date: 20230113
  Serious: No
  Sender: FDA-Public Use
  Company Number: US-ABBVIE-4193317

PATIENT
  Age: 58 Year
  Sex: Female

DRUGS (3)
  1. SKYRIZI [Suspect]
     Active Substance: RISANKIZUMAB-RZAA
     Indication: Psoriasis
     Route: 058
  2. SKYRIZI [Suspect]
     Active Substance: RISANKIZUMAB-RZAA
     Dosage: WEEK 0
     Route: 058
     Dates: start: 20220914
  3. SKYRIZI [Suspect]
     Active Substance: RISANKIZUMAB-RZAA
     Dosage: WEEK 4
     Route: 058

REACTIONS (3)
  - Malaise [Unknown]
  - Nasopharyngitis [Unknown]
  - Respiratory symptom [Unknown]

NARRATIVE: CASE EVENT DATE: 20221101
